FAERS Safety Report 22055053 (Version 5)
Quarter: 2023Q2

REPORT INFORMATION
  Report Type: Report from Study
  Country: MX (occurrence: None)
  Receive Date: 20230302
  Receipt Date: 20230629
  Transmission Date: 20230721
  Serious: Yes (Hospitalization, Other)
  Sender: FDA-Public Use
  Company Number: MX-ROCHE-3292951

PATIENT
  Age: 67 Year
  Sex: Male
  Weight: 66.8 kg

DRUGS (15)
  1. MOSUNETUZUMAB [Suspect]
     Active Substance: MOSUNETUZUMAB
     Indication: B-cell lymphoma
     Dosage: DOSE LAST STUDY DRUG MOSUNETUZUMAB ADMIN PRIOR AE/SAE WAS 45 MG?ON 14/FEB/2023, MOST RECENT DOSE OF
     Route: 058
     Dates: start: 20230124
  2. POLATUZUMAB VEDOTIN [Suspect]
     Active Substance: POLATUZUMAB VEDOTIN
     Indication: B-cell lymphoma
     Dosage: DOSE LAST STUDY DRUG POLATUZUMAB ADMIN PRIOR AE/SAE WAS 119.7?ON 14/FEB/2023, MOST RECENT DOSE OF ST
     Route: 042
     Dates: start: 20230124
  3. ACETAMINOPHEN\TRAMADOL [Concomitant]
     Active Substance: ACETAMINOPHEN\TRAMADOL
     Indication: Pain
  4. SENNOSIDES [Concomitant]
     Active Substance: SENNOSIDES
     Indication: Constipation
  5. ACYCLOVIR [Concomitant]
     Active Substance: ACYCLOVIR
     Dates: start: 20230123
  6. BACTRIM [Concomitant]
     Active Substance: SULFAMETHOXAZOLE\TRIMETHOPRIM
     Dates: start: 20230123
  7. ALLOPURINOL [Concomitant]
     Active Substance: ALLOPURINOL
     Indication: Hyperuricaemia
  8. ONDANSETRON [Concomitant]
     Active Substance: ONDANSETRON
     Dates: start: 20230130
  9. OMEPRAZOLE [Concomitant]
     Active Substance: OMEPRAZOLE
     Indication: Abdominal pain upper
     Dates: start: 20230130
  10. HYDROCORTISONE [Concomitant]
     Active Substance: HYDROCORTISONE
     Indication: Rash
     Route: 061
     Dates: start: 20230207, end: 20230221
  11. TAPENTADOL [Concomitant]
     Active Substance: TAPENTADOL
     Indication: Pain
     Dates: start: 20230213
  12. PREGABALIN [Concomitant]
     Active Substance: PREGABALIN
     Dates: start: 20230213
  13. CEFTRIAXONE [Concomitant]
     Active Substance: CEFTRIAXONE
     Indication: Pyrexia
     Dates: start: 20230226
  14. POTASSIUM CHLORIDE [Concomitant]
     Active Substance: POTASSIUM CHLORIDE
     Indication: Hypokalaemia
     Dates: start: 20230226, end: 20230226
  15. MAGNESIUM SULFATE [Concomitant]
     Active Substance: MAGNESIUM SULFATE
     Indication: Hypomagnesaemia
     Dates: start: 20230226, end: 20230226

REACTIONS (2)
  - Tumour flare [Recovered/Resolved]
  - Pain [Recovered/Resolved]

NARRATIVE: CASE EVENT DATE: 20230216
